FAERS Safety Report 5921586-1 (Version None)
Quarter: 2008Q4

REPORT INFORMATION
  Report Type: 
  Country: None (occurrence: None)
  Receive Date: 20081017
  Receipt Date: 20081004
  Transmission Date: 20090506
  Serious: Yes (Hospitalization, Other)
  Sender: FDA-Public Use
  Company Number: SI-BAYER-200828191GPV

PATIENT
  Age: 18 Year
  Sex: Female

DRUGS (1)
  1. INTERFERON BETA- 1B [Suspect]
     Indication: RELAPSING-REMITTING MULTIPLE SCLEROSIS
     Route: 065

REACTIONS (9)
  - DILATATION VENTRICULAR [None]
  - DYSPNOEA EXERTIONAL [None]
  - MALAISE [None]
  - OEDEMA PERIPHERAL [None]
  - PULMONARY ARTERIAL HYPERTENSION [None]
  - QRS AXIS ABNORMAL [None]
  - RIGHT VENTRICULAR FAILURE [None]
  - RIGHT VENTRICULAR HYPERTROPHY [None]
  - SINUS TACHYCARDIA [None]
